FAERS Safety Report 17804491 (Version 6)
Quarter: 2020Q3

REPORT INFORMATION
  Report Type: Report from Study
  Country: DE (occurrence: DE)
  Receive Date: 20200519
  Receipt Date: 20200910
  Transmission Date: 20201102
  Serious: Yes (Life-Threatening, Hospitalization, Other)
  Sender: FDA-Public Use
  Company Number: DE-BRISTOL-MYERS SQUIBB COMPANY-BMS-2020-028846

PATIENT
  Age: 67 Year
  Sex: Male

DRUGS (9)
  1. NIVOLUMAB [Suspect]
     Active Substance: NIVOLUMAB
     Dosage: 480 MILLIGRAM
     Route: 042
     Dates: start: 20200107
  2. NIVOLUMAB [Suspect]
     Active Substance: NIVOLUMAB
     Dosage: 480 MILLIGRAM
     Route: 042
     Dates: start: 20191210
  3. NIVOLUMAB [Suspect]
     Active Substance: NIVOLUMAB
     Dosage: 86 MILLIGRAM, Q3WK
     Route: 065
     Dates: start: 20200303
  4. NIVOLUMAB [Suspect]
     Active Substance: NIVOLUMAB
     Dosage: 86 MILLIGRAM EVERY 22 DAY
     Route: 042
     Dates: start: 20200324
  5. METHYLPREDNISOLON [METHYLPREDNISOLONE] [Concomitant]
     Active Substance: METHYLPREDNISOLONE
     Indication: PRODUCT USED FOR UNKNOWN INDICATION
     Dosage: 200 MILLIGRAM, REDUCING 20 MG EVERY 3 DAYS
     Route: 042
     Dates: start: 20200423
  6. NIVOLUMAB [Suspect]
     Active Substance: NIVOLUMAB
     Dosage: 480 MILLIGRAM
     Route: 042
     Dates: start: 20200204
  7. NIVOLUMAB [Suspect]
     Active Substance: NIVOLUMAB
     Indication: MALIGNANT MELANOMA
     Dosage: 480 MILLIGRAM
     Route: 042
     Dates: start: 20191111
  8. IMMUNGLOBULIN [Concomitant]
     Active Substance: HUMAN IMMUNOGLOBULIN G
     Indication: PRODUCT USED FOR UNKNOWN INDICATION
     Route: 065
  9. PREGABALIN. [Concomitant]
     Active Substance: PREGABALIN
     Indication: PRODUCT USED FOR UNKNOWN INDICATION
     Dosage: 500 MILLIGRAM
     Route: 048
     Dates: start: 20200602

REACTIONS (14)
  - Epilepsy [Unknown]
  - Hypoaesthesia [Unknown]
  - Mucosal infection [Recovered/Resolved]
  - Pulmonary embolism [Recovering/Resolving]
  - Pulmonary oedema [Unknown]
  - Prescribed underdose [Unknown]
  - Subdural haematoma [Recovering/Resolving]
  - Autoimmune hepatitis [Recovering/Resolving]
  - Metastases to bone [Unknown]
  - Hepatic enzyme increased [Not Recovered/Not Resolved]
  - Off label use [Unknown]
  - Autoimmune neuropathy [Unknown]
  - Metastases to soft tissue [Unknown]
  - Diarrhoea [Recovered/Resolved]

NARRATIVE: CASE EVENT DATE: 20200225
